FAERS Safety Report 6200600-2 (Version None)
Quarter: 2009Q2

REPORT INFORMATION
  Report Type: 
  Country: None (occurrence: None)
  Receive Date: 20090522
  Receipt Date: 20080429
  Transmission Date: 20091009
  Serious: Yes (Hospitalization)
  Sender: FDA-Public Use
  Company Number: US-ALEXION-A200800064

PATIENT
  Sex: Female

DRUGS (11)
  1. SOLIRIS [Suspect]
     Indication: APLASTIC ANAEMIA
     Dosage: 600 MG, SINGLE
     Route: 042
     Dates: start: 20080229, end: 20080229
  2. SOLIRIS [Suspect]
     Dosage: 600 MG, SINGLE
     Route: 042
     Dates: start: 20080307, end: 20080307
  3. SOLIRIS [Suspect]
     Dosage: 600 MG, SINGLE
     Route: 042
     Dates: start: 20080314, end: 20080314
  4. SOLIRIS [Suspect]
     Dosage: 600 MG, SINGLE
     Route: 042
     Dates: start: 20080321, end: 20080321
  5. SOLIRIS [Suspect]
     Dosage: 900 MG, SINGLE
     Route: 042
     Dates: start: 20080328, end: 20080328
  6. SOLIRIS [Suspect]
     Dosage: 900 MG, SINGLE
     Route: 042
     Dates: start: 20080411, end: 20080411
  7. COUMADIN [Concomitant]
     Dosage: 7.5 MG, QOD
     Route: 048
  8. COUMADIN [Concomitant]
     Dosage: 5 MG, QOD
     Route: 048
  9. FOLIC ACID [Concomitant]
     Dosage: 1 MG, QD
     Route: 048
  10. PROCHLORPERAZINE [Concomitant]
     Indication: NAUSEA
     Dosage: 10 MG, Q6H, PRN
     Route: 048
  11. TYLENOL (CAPLET) [Concomitant]
     Dosage: UNK, PRN
     Route: 048

REACTIONS (1)
  - INFLUENZA [None]
